FAERS Safety Report 22231574 (Version 1)
Quarter: 2023Q2

REPORT INFORMATION
  Report Type: Spontaneous
  Country: GB (occurrence: GB)
  Receive Date: 20230420
  Receipt Date: 20230420
  Transmission Date: 20230721
  Serious: Yes (Other)
  Sender: FDA-Public Use
  Company Number: GB-MHRA-MED-202303061015121770-GBMLP

PATIENT
  Age: 66 Year
  Sex: Female
  Weight: 70 kg

DRUGS (1)
  1. METRONIDAZOLE [Suspect]
     Active Substance: METRONIDAZOLE
     Indication: Tooth infection
     Dosage: 400 MILLIGRAMS (MG) TDS
     Route: 065
     Dates: start: 20220308

REACTIONS (8)
  - Oral discharge [Not Recovered/Not Resolved]
  - Mouth swelling [Unknown]
  - Malpositioned teeth [Unknown]
  - Oral pain [Unknown]
  - Hypoaesthesia [Unknown]
  - Asthenia [Unknown]
  - Depression suicidal [Recovered/Resolved]
  - Dysgeusia [Recovered/Resolved]

NARRATIVE: CASE EVENT DATE: 20220309
